FAERS Safety Report 8469399-3 (Version None)
Quarter: 2012Q2

REPORT INFORMATION
  Report Type: 
  Country: None (occurrence: None)
  Receive Date: 20120626
  Receipt Date: 20120621
  Transmission Date: 20120825
  Serious: Yes (Other)
  Sender: FDA-Public Use
  Company Number: US-CELGENEUS-163-21880-12063304

PATIENT
  Sex: Female

DRUGS (9)
  1. BYSTOLIC [Concomitant]
     Route: 065
  2. DEXAMETHASONE [Concomitant]
     Route: 065
  3. ALPRAZOLAM [Concomitant]
     Route: 065
  4. CYMBALTA [Concomitant]
     Route: 065
  5. ASPIRIN [Concomitant]
     Dosage: 81 MILLIGRAM
     Route: 065
  6. REVLIMID [Suspect]
     Dosage: 10 MILLIGRAM
     Route: 048
     Dates: start: 20120425
  7. GLUCOPHAGE [Concomitant]
     Route: 065
  8. CALCIUM [Concomitant]
     Route: 065
  9. DOXYCYCLINE HYCLATE [Concomitant]
     Route: 065

REACTIONS (2)
  - PSORIASIS [None]
  - GINGIVAL BLEEDING [None]
